FAERS Safety Report 23127683 (Version 5)
Quarter: 2023Q4

REPORT INFORMATION
  Report Type: Report from Study
  Country: JP (occurrence: JP)
  Receive Date: 20231031
  Receipt Date: 20231226
  Transmission Date: 20240110
  Serious: Yes (Other)
  Sender: FDA-Public Use
  Company Number: JP-JNJFOC-20231064460

PATIENT
  Age: 80 Year
  Sex: Male
  Weight: 59 kg

DRUGS (3)
  1. ERLEADA [Suspect]
     Active Substance: APALUTAMIDE
     Indication: Prostate cancer
     Route: 048
     Dates: start: 20231004
  2. CALCIUM CARBONATE\CHOLECALCIFEROL\MAGNESIUM CARBONATE [Concomitant]
     Active Substance: CALCIUM CARBONATE\CHOLECALCIFEROL\MAGNESIUM CARBONATE
     Indication: Product used for unknown indication
     Route: 048
     Dates: start: 20231017
  3. OTHER HORMONE ANTAGONISTS AND RELATED AGENTS [Concomitant]
     Indication: Prostate cancer
     Dosage: DOSE UNKNOWN
     Route: 058

REACTIONS (16)
  - Loss of control of legs [Recovered/Resolved]
  - Catheter site pain [Recovered/Resolved]
  - Fall [Recovered/Resolved]
  - Traumatic haemorrhage [Recovering/Resolving]
  - Muscular weakness [Not Recovered/Not Resolved]
  - Weight decreased [Recovering/Resolving]
  - Hypophagia [Recovering/Resolving]
  - Pruritus [Recovering/Resolving]
  - Erythema [Not Recovered/Not Resolved]
  - Hot flush [Not Recovered/Not Resolved]
  - Insomnia [Not Recovered/Not Resolved]
  - Gait disturbance [Not Recovered/Not Resolved]
  - Blister [Recovering/Resolving]
  - Rash [Recovering/Resolving]
  - Blood potassium increased [Not Recovered/Not Resolved]
  - Pollakiuria [Not Recovered/Not Resolved]

NARRATIVE: CASE EVENT DATE: 20230101
